FAERS Safety Report 23054839 (Version 1)
Quarter: 2023Q4

REPORT INFORMATION
  Report Type: Spontaneous
  Country: FR (occurrence: FR)
  Receive Date: 20231011
  Receipt Date: 20231011
  Transmission Date: 20240109
  Serious: Yes (Hospitalization)
  Sender: FDA-Public Use
  Company Number: None

PATIENT
  Age: 21 Year
  Sex: Female

DRUGS (4)
  1. ALEVE [Suspect]
     Active Substance: NAPROXEN SODIUM
     Indication: Ankylosing spondylitis
     Route: 048
     Dates: start: 20200615
  2. CICLOPIROX OLAMINE [Concomitant]
     Active Substance: CICLOPIROX OLAMINE
  3. KETODERM [KETOCONAZOLE] [Concomitant]
  4. DUPIXENT [Concomitant]
     Active Substance: DUPILUMAB

REACTIONS (1)
  - Erysipelas [Recovering/Resolving]

NARRATIVE: CASE EVENT DATE: 20230329
